FAERS Safety Report 7952304-3 (Version None)
Quarter: 2011Q4

REPORT INFORMATION
  Report Type: 
  Country: None (occurrence: None)
  Receive Date: 20111201
  Receipt Date: 20111122
  Transmission Date: 20120403
  Serious: Yes (Death, Hospitalization, Other)
  Sender: FDA-Public Use
  Company Number: US-ACTELION-A-NJ2011-54646

PATIENT

DRUGS (2)
  1. TRACLEER [Suspect]
     Indication: PULMONARY ARTERIAL HYPERTENSION
     Dosage: UNK
     Route: 048
     Dates: start: 20030101, end: 20111119
  2. COUMADIN [Concomitant]

REACTIONS (3)
  - PNEUMONIA ASPIRATION [None]
  - PULMONARY ARTERIAL HYPERTENSION [None]
  - ENDOCARDITIS BACTERIAL [None]
